FAERS Safety Report 6586085-5 (Version None)
Quarter: 2010Q1

REPORT INFORMATION
  Report Type: 
  Country: None (occurrence: None)
  Receive Date: 20100216
  Receipt Date: 20100216
  Transmission Date: 20100710
  Serious: No
  Sender: FDA-Public Use
  Company Number: None

PATIENT
  Age: 70 Year
  Sex: Male

DRUGS (2)
  1. FENTANYL-100 [Suspect]
     Indication: PAIN
     Dates: start: 20090925, end: 20090925
  2. MIDAZOLAM HCL [Suspect]
     Indication: SURGERY
     Dates: start: 20090925, end: 20090925

REACTIONS (11)
  - AGITATION [None]
  - ANXIETY [None]
  - CHILLS [None]
  - CHROMATURIA [None]
  - DISORIENTATION [None]
  - HYPOTENSION [None]
  - RESPIRATORY DEPRESSION [None]
  - SEDATION [None]
  - SINUS TACHYCARDIA [None]
  - TACHYPNOEA [None]
  - URINE OUTPUT DECREASED [None]
